FAERS Safety Report 22165651 (Version 2)
Quarter: 2023Q2

REPORT INFORMATION
  Report Type: Spontaneous
  Country: DE (occurrence: DE)
  Receive Date: 20230403
  Receipt Date: 20230501
  Transmission Date: 20230722
  Serious: Yes (Other)
  Sender: FDA-Public Use
  Company Number: DE-ROCHE-3314063

PATIENT
  Age: 60 Year
  Sex: Male

DRUGS (16)
  1. CYCLOPHOSPHAMIDE [Suspect]
     Active Substance: CYCLOPHOSPHAMIDE
     Indication: Diffuse large B-cell lymphoma
     Dosage: UNK, R-CHOP, FIRST LINE
     Route: 065
     Dates: start: 20220601, end: 20221101
  2. CISPLATIN [Suspect]
     Active Substance: CISPLATIN
     Indication: Diffuse large B-cell lymphoma
     Dosage: UNK, R-CHOP, FIRST LINE
     Route: 065
     Dates: start: 20221201, end: 20230201
  3. DEXAMETHASONE [Suspect]
     Active Substance: DEXAMETHASONE
     Indication: Diffuse large B-cell lymphoma
     Dosage: UNK, R-CHOP, FIRST LINE
     Route: 065
     Dates: start: 20221201, end: 20230201
  4. LENALIDOMIDE [Suspect]
     Active Substance: LENALIDOMIDE
     Indication: Diffuse large B-cell lymphoma
     Dosage: UNK
     Route: 065
     Dates: start: 20230316, end: 20230331
  5. DOXORUBICIN [Suspect]
     Active Substance: DOXORUBICIN
     Indication: Diffuse large B-cell lymphoma
     Dosage: UNK, R-CHOP, FIRST LINE
     Route: 065
     Dates: start: 20220601, end: 20221101
  6. PREDNISONE [Suspect]
     Active Substance: PREDNISONE
     Indication: Diffuse large B-cell lymphoma
     Dosage: UNK, R-CHOP, FIRST LINE
     Route: 065
     Dates: start: 20220601, end: 20221101
  7. CYTARABINE [Suspect]
     Active Substance: CYTARABINE
     Indication: Diffuse large B-cell lymphoma
     Dosage: UNK, R-CHOP, FIRST LINE
     Route: 065
     Dates: start: 20221201, end: 20230201
  8. RITUXIMAB [Suspect]
     Active Substance: RITUXIMAB
     Indication: Diffuse large B-cell lymphoma
     Dosage: UNK, R-CHOP, FIRST LINE
     Route: 065
     Dates: start: 202206, end: 202211
  9. RITUXIMAB [Suspect]
     Active Substance: RITUXIMAB
     Dosage: UNK, R-DHAP, 2ND LINE, 2 CYCLES
     Route: 065
     Dates: start: 202212, end: 202302
  10. RITUXIMAB [Suspect]
     Active Substance: RITUXIMAB
     Dosage: UNK, R-POLATUZMAB, BENDAMUSTINE, 3RD LINE
     Route: 065
     Dates: start: 20230202, end: 20230314
  11. BENDAMUSTINE [Suspect]
     Active Substance: BENDAMUSTINE
     Indication: Diffuse large B-cell lymphoma
     Dosage: UNK, R-CHOP, FIRST LINE
     Route: 065
     Dates: start: 20230202, end: 20230314
  12. VINCRISTINE [Suspect]
     Active Substance: VINCRISTINE
     Indication: Diffuse large B-cell lymphoma
     Dosage: UNK, R-CHOP, FIRST LINE
     Route: 065
     Dates: start: 20220601, end: 20221101
  13. POLATUZUMAB VEDOTIN [Suspect]
     Active Substance: POLATUZUMAB VEDOTIN
     Indication: Diffuse large B-cell lymphoma
     Dosage: UNK, R-CHOP, FIRST LINE
     Route: 065
     Dates: start: 20230202, end: 20230314
  14. MABTHERA [Suspect]
     Active Substance: RITUXIMAB
     Indication: Diffuse large B-cell lymphoma
     Dosage: UNK, R-CHOP, FIRST LINE
     Route: 042
     Dates: start: 202206, end: 202211
  15. MABTHERA [Suspect]
     Active Substance: RITUXIMAB
     Dosage: UNK, R-DHAP, 2ND LINE, 2 CYCLES
     Route: 042
     Dates: start: 202212, end: 202302
  16. MABTHERA [Suspect]
     Active Substance: RITUXIMAB
     Dosage: UNK, R-POLATUZMAB, BENDAMUSTINE, 3RD LINE
     Route: 042
     Dates: start: 20230202, end: 20230314

REACTIONS (2)
  - Pneumonia [Recovering/Resolving]
  - Lymphoma [Not Recovered/Not Resolved]

NARRATIVE: CASE EVENT DATE: 20230315
